FAERS Safety Report 16550682 (Version 1)
Quarter: 2019Q3

REPORT INFORMATION
  Report Type: Spontaneous
  Country: US (occurrence: US)
  Receive Date: 20190709
  Receipt Date: 20190709
  Transmission Date: 20191004
  Serious: Yes (Other)
  Sender: FDA-Public Use
  Company Number: None

PATIENT
  Age: 71 Year
  Sex: Female
  Weight: 69.3 kg

DRUGS (13)
  1. ASPIRIN. [Concomitant]
     Active Substance: ASPIRIN
  2. MULTIVITAMIN [Concomitant]
     Active Substance: VITAMINS
  3. RECLAST [Suspect]
     Active Substance: ZOLEDRONIC ACID
     Indication: OSTEOPENIA
     Route: 042
     Dates: start: 20190522, end: 20190522
  4. APPLE CIDER VINEGAR [Concomitant]
     Active Substance: APPLE CIDER VINEGAR
  5. CLOPIDOGREL [Concomitant]
     Active Substance: CLOPIDOGREL BISULFATE
  6. VITAMIN D3 [Concomitant]
     Active Substance: CHOLECALCIFEROL
  7. SINGULAIR [Concomitant]
     Active Substance: MONTELUKAST SODIUM
  8. DEXILANT [Concomitant]
     Active Substance: DEXLANSOPRAZOLE
  9. ENTRESTO [Concomitant]
     Active Substance: SACUBITRIL\VALSARTAN
  10. LEVOTHYROXIN [Concomitant]
     Active Substance: LEVOTHYROXINE
  11. OMEGA 3 [Concomitant]
     Active Substance: OMEGA-3 FATTY ACIDS
  12. SYMBICORT [Concomitant]
     Active Substance: BUDESONIDE\FORMOTEROL FUMARATE DIHYDRATE
  13. COENZYME Q10 [Concomitant]
     Active Substance: UBIDECARENONE

REACTIONS (8)
  - Musculoskeletal pain [None]
  - Myalgia [None]
  - Pain in jaw [None]
  - Arthralgia [None]
  - Product use complaint [None]
  - Bone pain [None]
  - Ear pain [None]
  - Arthritis [None]

NARRATIVE: CASE EVENT DATE: 20190613
